FAERS Safety Report 24404529 (Version 1)
Quarter: 2024Q4

REPORT INFORMATION
  Report Type: Spontaneous
  Country: DE (occurrence: DE)
  Receive Date: 20241007
  Receipt Date: 20241007
  Transmission Date: 20250115
  Serious: Yes (Other)
  Sender: SANDOZ
  Company Number: DE-BRISTOL-MYERS SQUIBB COMPANY-2023-160349

PATIENT
  Age: 53 Year
  Sex: Female
  Weight: 76 kg

DRUGS (14)
  1. CARBOPLATIN [Suspect]
     Active Substance: CARBOPLATIN
     Indication: Non-small cell lung cancer
     Dosage: UNK
     Route: 065
  2. CARBOPLATIN [Suspect]
     Active Substance: CARBOPLATIN
     Indication: Non-small cell lung cancer stage IIIA
  3. NIVOLUMAB [Suspect]
     Active Substance: NIVOLUMAB
     Indication: Non-small cell lung cancer
     Dosage: 3 TIMES EVERY 21 DAYS
     Route: 042
     Dates: start: 20230323, end: 20230504
  4. NIVOLUMAB [Suspect]
     Active Substance: NIVOLUMAB
     Indication: Lung neoplasm malignant
     Dosage: UNK
     Route: 065
  5. NIVOLUMAB [Suspect]
     Active Substance: NIVOLUMAB
     Indication: Non-small cell lung cancer stage IIIA
  6. PEMETREXED [Suspect]
     Active Substance: PEMETREXED
     Indication: Non-small cell lung cancer
     Dosage: UNK
     Route: 065
  7. PEMETREXED [Suspect]
     Active Substance: PEMETREXED
     Indication: Non-small cell lung cancer stage IIIA
  8. METHIMAZOLE [Suspect]
     Active Substance: METHIMAZOLE
     Indication: Hyperthyroidism
     Dosage: 20.000MG QD
     Route: 048
     Dates: start: 20230606, end: 20230719
  9. METHIMAZOLE [Suspect]
     Active Substance: METHIMAZOLE
     Dosage: UNK
     Route: 065
  10. CARBOPLATIN [Concomitant]
     Active Substance: CARBOPLATIN
     Indication: Non-small cell lung cancer
     Dosage: 5 AUC 3 TIMES EVERY 21 DAYS
     Route: 042
     Dates: start: 20230323, end: 20230504
  11. CARBOPLATIN [Concomitant]
     Active Substance: CARBOPLATIN
     Indication: Lung neoplasm malignant
  12. PEMETREXED [Concomitant]
     Active Substance: PEMETREXED
     Indication: Non-small cell lung cancer
     Dosage: EVERY 21 DAYS, 3TIMES
     Route: 042
     Dates: start: 20230323, end: 20230504
  13. PEMETREXED [Concomitant]
     Active Substance: PEMETREXED
     Indication: Lung neoplasm malignant
  14. PREDNISOLONE [Concomitant]
     Active Substance: PREDNISOLONE
     Indication: Hyperthyroidism
     Dosage: 40.000MG QD
     Route: 048
     Dates: start: 20230626, end: 20230719

REACTIONS (4)
  - Hypothyroidism [Recovered/Resolved]
  - Hyperthyroidism [Unknown]
  - Liver function test increased [Recovered/Resolved]
  - Off label use [Unknown]

NARRATIVE: CASE EVENT DATE: 20230606
